FAERS Safety Report 18513353 (Version 2)
Quarter: 2020Q4

REPORT INFORMATION
  Report Type: Report from Study
  Country: None (occurrence: FR)
  Receive Date: 20201118
  Receipt Date: 20201120
  Transmission Date: 20210114
  Serious: Yes (Death, Hospitalization)
  Sender: FDA-Public Use
  Company Number: FR-ABBVIE-20K-056-3652998-00

PATIENT
  Age: 77 Year
  Sex: Male

DRUGS (2)
  1. DUODOPA [Suspect]
     Active Substance: CARBIDOPA\LEVODOPA
     Indication: PARKINSON^S DISEASE
     Route: 050
     Dates: start: 202010, end: 202010
  2. DUODOPA [Suspect]
     Active Substance: CARBIDOPA\LEVODOPA

REACTIONS (9)
  - Muscle rigidity [Fatal]
  - Bronchitis [Fatal]
  - Medical device removal [Fatal]
  - Aspiration [Fatal]
  - Confusional state [Fatal]
  - Aphasia [Fatal]
  - Spinal compression fracture [Fatal]
  - Dysphagia [Fatal]
  - Device dislocation [Fatal]

NARRATIVE: CASE EVENT DATE: 202010
